FAERS Safety Report 11796014 (Version 5)
Quarter: 2018Q4

REPORT INFORMATION
  Report Type: Spontaneous
  Country: GB (occurrence: GB)
  Receive Date: 20151203
  Receipt Date: 20181030
  Transmission Date: 20190204
  Serious: Yes (Hospitalization, Other)
  Sender: FDA-Public Use
  Company Number: GB-ACCORD-035741

PATIENT
  Age: 44 Year
  Sex: Female

DRUGS (5)
  1. ABILIFY [Suspect]
     Active Substance: ARIPIPRAZOLE
     Indication: BIPOLAR I DISORDER
     Dosage: RECEIVED ARIPIPRAZOLE ON SAME DOSE ON 07-APR-2015, 20 MG ONCE DAILY FROM 09 TO 13-APR-2015
     Route: 048
     Dates: start: 20150130, end: 20150413
  2. CLOPIXOL [Suspect]
     Active Substance: ZUCLOPENTHIXOL
     Indication: MANIA
     Dosage: SHE RECEIVED 50 MG ON 31-MAR-2015 AND 100 MG ON 01-APR-2015 FOR 1 DAY TO 100 MG ON 02-APR-2015.
     Route: 030
     Dates: start: 20150413, end: 20150413
  3. LORAZEPAM. [Suspect]
     Active Substance: LORAZEPAM
     Indication: PRODUCT USED FOR UNKNOWN INDICATION
     Dosage: PATIENT ALSO RECEIVED LORAZEPAM 20 MG, ONCE DAILY FROM 30-MAR-2015 TO 12-APR-2015, 1 DF TABLET
     Route: 030
     Dates: start: 20150402, end: 20150402
  4. CLONAZEPAM. [Suspect]
     Active Substance: CLONAZEPAM
     Indication: PRODUCT USED FOR UNKNOWN INDICATION
     Dosage: 3 MG DAILY, ALSO CUMULATIVE DOSE 42 MG, 1-2 MG MAXIMUM 4 MG DAILY
     Route: 048
     Dates: start: 20150329, end: 20150413
  5. OLANZAPINE. [Suspect]
     Active Substance: OLANZAPINE
     Indication: PRODUCT USED FOR UNKNOWN INDICATION
     Dosage: UP TO 20 MG AS REQUIRED
     Route: 048
     Dates: start: 20150330, end: 20150412

REACTIONS (3)
  - Neutropenia [Recovered/Resolved]
  - Prescribed overdose [Unknown]
  - Medication error [Unknown]

NARRATIVE: CASE EVENT DATE: 20150414
